FAERS Safety Report 12669471 (Version 4)
Quarter: 2016Q3

REPORT INFORMATION
  Report Type: Report from Study
  Country: US (occurrence: US)
  Receive Date: 20160819
  Receipt Date: 20160915
  Transmission Date: 20161109
  Serious: Yes (Hospitalization)
  Sender: FDA-Public Use
  Company Number: US-ACTELION-A-US2016-140887

PATIENT
  Age: 62 Year
  Sex: Female

DRUGS (28)
  1. UPTRAVI [Suspect]
     Active Substance: SELEXIPAG
     Indication: PULMONARY ARTERIAL HYPERTENSION
     Dosage: 200 MCG, BID
     Route: 048
     Dates: start: 20160819, end: 20160901
  2. WARFARIN [Concomitant]
     Active Substance: WARFARIN
     Dosage: 5 MG, QPM
     Route: 048
  3. ATORVASTATIN [Concomitant]
     Active Substance: ATORVASTATIN
     Dosage: 40 MG, Q BEDTIME
     Route: 048
  4. VITAMIN D3 [Concomitant]
     Active Substance: CHOLECALCIFEROL
     Dosage: 1000 U, UNK
     Route: 048
  5. OPSUMIT [Suspect]
     Active Substance: MACITENTAN
     Indication: PULMONARY ARTERIAL HYPERTENSION
     Dosage: 10 MG, QD
     Route: 048
     Dates: start: 20150817
  6. OPSUMIT [Suspect]
     Active Substance: MACITENTAN
     Dosage: 10 MG, UNK
     Route: 048
     Dates: start: 20160818
  7. UPTRAVI [Suspect]
     Active Substance: SELEXIPAG
     Dosage: 200 MCG, QD
     Route: 048
     Dates: start: 20160901, end: 201609
  8. ROBITUSSIN A C [Concomitant]
     Dosage: 10 MG-100 MG/5ML, PRN, TID
     Route: 048
  9. AMLODIPINE [Concomitant]
     Active Substance: AMLODIPINE BESYLATE
     Dosage: 10 MG, UNK
     Route: 048
  10. BUMEX [Concomitant]
     Active Substance: BUMETANIDE
     Dosage: 1 MG, UNK
     Route: 048
  11. LANTUS [Concomitant]
     Active Substance: INSULIN GLARGINE
     Dosage: 100 UNIT/ML. 18 UNIT, Q BEDTIME
     Route: 058
  12. DULOXETINE. [Concomitant]
     Active Substance: DULOXETINE
     Dosage: 30 MG, Q EVENING
     Route: 048
  13. MILRINONE [Concomitant]
     Active Substance: MILRINONE
     Dosage: 200 MCG/ML-D5%
     Route: 042
  14. SILDENAFIL. [Concomitant]
     Active Substance: SILDENAFIL
     Dosage: 20 MG,TID
     Route: 048
  15. AMBIEN [Concomitant]
     Active Substance: ZOLPIDEM TARTRATE
     Dosage: 5 MG, PRN, Q BEDTIME
     Route: 048
  16. ECOTRIN [Concomitant]
     Active Substance: ASPIRIN
     Dosage: 81 MG, UNK
     Route: 048
  17. COREG [Concomitant]
     Active Substance: CARVEDILOL
     Dosage: 3.125 MG, Q12H
     Route: 048
  18. MYCOPHENOLATE MOFETIL. [Concomitant]
     Active Substance: MYCOPHENOLATE MOFETIL
     Dosage: 500 MG, 1000 MG = 2 TAB, BID (BEFORE BREAKFAST + DINNER)
     Route: 048
  19. DOCUSATE [Concomitant]
     Active Substance: DOCUSATE
     Dosage: 50-8.6 MG PRN, QD
     Route: 048
  20. HUMALOG [Concomitant]
     Active Substance: INSULIN LISPRO
     Dosage: 1 UNIT, PRN,QID
     Route: 058
  21. APRESOLINE HYDROCHLORIDE [Concomitant]
     Active Substance: HYDRALAZINE HYDROCHLORIDE
     Dosage: 100 MG, 2 TABS, Q8HRS
     Route: 048
  22. ALBUTEROL HFA [Concomitant]
     Active Substance: ALBUTEROL SULFATE
     Dosage: 90 MCG/PUFF, 180 MCG/2 PUFFS
     Route: 055
  23. ANASTROZOLE. [Concomitant]
     Active Substance: ANASTROZOLE
     Dosage: 1 MG, UNK
     Route: 048
  24. MAG-OX [Concomitant]
     Active Substance: MAGNESIUM OXIDE
     Dosage: 400 MG, BID, BREAKFAST AND DINNER
  25. PERCOCET [Concomitant]
     Active Substance: ACETAMINOPHEN\OXYCODONE HYDROCHLORIDE
     Dosage: 5/325 MG, QD, PRN
     Route: 048
  26. CALCITROL [Concomitant]
     Active Substance: CALCITRIOL
     Dosage: 0.25 MCG, Q MON + THUR
     Route: 048
  27. SENNA [Concomitant]
     Active Substance: SENNA LEAF\SENNOSIDES\SENNOSIDES A AND B
     Dosage: 50-8.6 MG PRN, QD
  28. GABAPENTIN. [Concomitant]
     Active Substance: GABAPENTIN
     Dosage: 300 MG, 2 TABS, Q8HRS
     Route: 048

REACTIONS (17)
  - Cough [Recovered/Resolved]
  - Nausea [Recovered/Resolved]
  - Vomiting [Recovered/Resolved]
  - Dyspnoea exertional [Unknown]
  - Fatigue [Recovering/Resolving]
  - Diarrhoea [Unknown]
  - Tracheobronchitis [Recovering/Resolving]
  - Wheezing [Recovered/Resolved]
  - Chronic obstructive pulmonary disease [Recovering/Resolving]
  - Staphylococcal infection [Recovering/Resolving]
  - Upper respiratory tract infection [Recovering/Resolving]
  - Fluid overload [Recovering/Resolving]
  - Abdominal pain [Recovered/Resolved]
  - Dehydration [Unknown]
  - Nasopharyngitis [Recovered/Resolved]
  - Decreased appetite [Unknown]
  - Lower respiratory tract infection [Recovering/Resolving]

NARRATIVE: CASE EVENT DATE: 20160806
